FAERS Safety Report 12070073 (Version 1)
Quarter: 2016Q1

REPORT INFORMATION
  Report Type: Report from Study
  Country: US (occurrence: US)
  Receive Date: 20160211
  Receipt Date: 20160211
  Transmission Date: 20160526
  Serious: Yes (Death, Hospitalization, Other)
  Sender: FDA-Public Use
  Company Number: US-ASTELLAS-2016US004676

PATIENT
  Age: 70 Year

DRUGS (4)
  1. BEVACIZUMAB [Suspect]
     Active Substance: BEVACIZUMAB
     Indication: HEAD AND NECK CANCER
     Route: 042
     Dates: start: 20040929, end: 20050221
  2. METOPROLOL. [Suspect]
     Active Substance: METOPROLOL
     Indication: PRODUCT USED FOR UNKNOWN INDICATION
     Dosage: UNK, UNKNOWN FREQ.
     Route: 065
  3. KEFLEX [Suspect]
     Active Substance: CEPHALEXIN
     Indication: PRODUCT USED FOR UNKNOWN INDICATION
     Dosage: UNK UNK, UNKNOWN FREQ.
     Route: 065
  4. ERLOTINIB [Suspect]
     Active Substance: ERLOTINIB
     Indication: HEAD AND NECK CANCER
     Route: 048
     Dates: start: 20040929, end: 20050316

REACTIONS (12)
  - Infection [Fatal]
  - Peripheral sensory neuropathy [Unknown]
  - Fatigue [Unknown]
  - Muscular weakness [Unknown]
  - Pyrexia [Unknown]
  - Sinus tachycardia [Unknown]
  - Hyponatraemia [Unknown]
  - Malignant neoplasm progression [Unknown]
  - Dehydration [Unknown]
  - Pneumonia [Fatal]
  - Abdominal pain [Unknown]
  - Hypotension [Unknown]

NARRATIVE: CASE EVENT DATE: 20050102
